FAERS Safety Report 6549157-7 (Version None)
Quarter: 2010Q1

REPORT INFORMATION
  Report Type: 
  Country: None (occurrence: None)
  Receive Date: 20100125
  Receipt Date: 20091203
  Transmission Date: 20100710
  Serious: No
  Sender: FDA-Public Use
  Company Number: US-BAYER-200942237NA

PATIENT
  Age: 31 Year
  Sex: Female

DRUGS (5)
  1. ULTRAVIST 300 [Suspect]
     Indication: COMPUTERISED TOMOGRAM ABDOMEN
     Dosage: TOTAL DAILY DOSE: 88 ML  UNIT DOSE: 200 ML
     Route: 042
     Dates: start: 20091202, end: 20091202
  2. VOLUMEN [Concomitant]
     Indication: COMPUTERISED TOMOGRAM ABDOMEN
     Dosage: X 2 BOTTLES
     Route: 048
     Dates: start: 20091202, end: 20091202
  3. CIPRO [Concomitant]
  4. FAMOTIDINE [Concomitant]
  5. FIORICET [Concomitant]

REACTIONS (1)
  - SNEEZING [None]
